FAERS Safety Report 6450916-X (Version None)
Quarter: 2009Q4

REPORT INFORMATION
  Report Type: 
  Country: None (occurrence: None)
  Receive Date: 20091123
  Receipt Date: 20091117
  Transmission Date: 20100525
  Serious: Yes (Hospitalization)
  Sender: FDA-Public Use
  Company Number: A0779056A

PATIENT
  Age: 52 Year
  Sex: Female
  Weight: 107.3 kg

DRUGS (14)
  1. AVANDIA [Suspect]
     Indication: DIABETES MELLITUS
     Dosage: 8MG PER DAY
     Route: 048
     Dates: start: 19990910, end: 20060901
  2. REZULIN [Concomitant]
     Dates: end: 20000101
  3. AMARYL [Concomitant]
  4. PREDNISONE [Concomitant]
  5. ZAROXOLYN [Concomitant]
  6. ZOCOR [Concomitant]
  7. SERZONE [Concomitant]
  8. LEXAPRO [Concomitant]
  9. FLOVENT [Concomitant]
  10. ALBUTEROL [Concomitant]
  11. ATROVENT [Concomitant]
  12. LEVOTHYROXINE SODIUM [Concomitant]
  13. LASIX [Concomitant]
  14. COZAAR [Concomitant]

REACTIONS (6)
  - CARDIAC FAILURE CONGESTIVE [None]
  - CORONARY ARTERY DISEASE [None]
  - HYPERKALAEMIA [None]
  - HYPERTENSION [None]
  - MYOCARDIAL INFARCTION [None]
  - RENAL FAILURE [None]
